FAERS Safety Report 25430443 (Version 1)
Quarter: 2025Q2

REPORT INFORMATION
  Report Type: Spontaneous
  Country: ES (occurrence: ES)
  Receive Date: 20250612
  Receipt Date: 20250612
  Transmission Date: 20250717
  Serious: Yes (Hospitalization)
  Sender: MYLAN
  Company Number: None

PATIENT
  Age: 66 Year
  Sex: Male

DRUGS (8)
  1. ATORVASTATIN [Interacting]
     Active Substance: ATORVASTATIN
     Indication: Hypercholesterolaemia
     Dosage: 80 MILLIGRAM, QD
     Dates: start: 202204, end: 20250129
  2. ATORVASTATIN [Interacting]
     Active Substance: ATORVASTATIN
     Dosage: 80 MILLIGRAM, QD
     Route: 048
     Dates: start: 202204, end: 20250129
  3. ATORVASTATIN [Interacting]
     Active Substance: ATORVASTATIN
     Dosage: 80 MILLIGRAM, QD
     Route: 048
     Dates: start: 202204, end: 20250129
  4. ATORVASTATIN [Interacting]
     Active Substance: ATORVASTATIN
     Dosage: 80 MILLIGRAM, QD
     Dates: start: 202204, end: 20250129
  5. AZITHROMYCIN [Interacting]
     Active Substance: AZITHROMYCIN
     Indication: Infection prophylaxis
     Dosage: 1.5 GRAM, QW
     Dates: start: 202304
  6. AZITHROMYCIN [Interacting]
     Active Substance: AZITHROMYCIN
     Dosage: 1.5 GRAM, QW
     Route: 048
     Dates: start: 202304
  7. AZITHROMYCIN [Interacting]
     Active Substance: AZITHROMYCIN
     Dosage: 1.5 GRAM, QW
     Route: 048
     Dates: start: 202304
  8. AZITHROMYCIN [Interacting]
     Active Substance: AZITHROMYCIN
     Dosage: 1.5 GRAM, QW
     Dates: start: 202304

REACTIONS (3)
  - Rhabdomyolysis [Recovered/Resolved]
  - Hypertransaminasaemia [Recovering/Resolving]
  - Drug interaction [Unknown]

NARRATIVE: CASE EVENT DATE: 20241101
